FAERS Safety Report 5523822-2 (Version None)
Quarter: 2007Q4

REPORT INFORMATION
  Report Type: 
  Country: None (occurrence: None)
  Receive Date: 20071119
  Receipt Date: 20071105
  Transmission Date: 20080405
  Serious: Yes (Death, Life-Threatening)
  Sender: FDA-Public Use
  Company Number: 2007P1000693

PATIENT
  Age: 14 Year
  Sex: Female

DRUGS (9)
  1. BUSULFAN (BUSULFAN) [Suspect]
     Indication: STEM CELL TRANSPLANT
     Dosage: 21.6 ML; QD; IV, 30.8 ML; QD; IV, 7.2 ML;QD;IV
     Route: 042
     Dates: start: 20070529, end: 20070529
  2. BUSULFAN (BUSULFAN) [Suspect]
     Indication: STEM CELL TRANSPLANT
     Dosage: 21.6 ML; QD; IV, 30.8 ML; QD; IV, 7.2 ML;QD;IV
     Route: 042
     Dates: start: 20070530, end: 20070601
  3. BUSULFAN (BUSULFAN) [Suspect]
     Indication: STEM CELL TRANSPLANT
     Dosage: 21.6 ML; QD; IV, 30.8 ML; QD; IV, 7.2 ML;QD;IV
     Route: 042
     Dates: start: 20070602, end: 20070602
  4. FLUDARABINE PHOSPHATE [Concomitant]
  5. MELPHALAN [Concomitant]
  6. PHENYTOIN [Concomitant]
  7. LENOGRASTIM [Concomitant]
  8. METHOTREXATE [Concomitant]
  9. TACROLIMUS [Concomitant]

REACTIONS (4)
  - ACUTE GRAFT VERSUS HOST DISEASE [None]
  - CYTOMEGALOVIRUS HEPATITIS [None]
  - KLEBSIELLA SEPSIS [None]
  - VENOOCCLUSIVE LIVER DISEASE [None]
